FAERS Safety Report 14629761 (Version 1)
Quarter: 2018Q1

REPORT INFORMATION
  Report Type: Spontaneous
  Country: US (occurrence: US)
  Receive Date: 20180313
  Receipt Date: 20180313
  Transmission Date: 20180509
  Serious: Yes (Hospitalization, Other)
  Sender: FDA-Public Use
  Company Number: US-LUPIN PHARMACEUTICALS INC.-2018-01571

PATIENT
  Sex: Female

DRUGS (1)
  1. MY WAY [Suspect]
     Active Substance: LEVONORGESTREL
     Indication: ORAL CONTRACEPTION
     Dosage: 2 DF
     Route: 048

REACTIONS (5)
  - Menorrhagia [Unknown]
  - Abortion spontaneous [Unknown]
  - Extra dose administered [Unknown]
  - Muscle spasms [Unknown]
  - Pregnancy on contraceptive [Unknown]
